FAERS Safety Report 5378456-X (Version None)
Quarter: 2007Q3

REPORT INFORMATION
  Report Type: 
  Country: None (occurrence: None)
  Receive Date: 20070702
  Receipt Date: 20070614
  Transmission Date: 20080115
  Serious: Yes (Hospitalization)
  Sender: FDA-Public Use
  Company Number: S07-FRA-02701-01

PATIENT
  Age: 32 Year
  Sex: Female

DRUGS (2)
  1. ESCITALOPRAM [Suspect]
     Dosage: 10 MG QD PO
     Route: 048
  2. ABILIFY [Suspect]

REACTIONS (2)
  - DRUG INTERACTION [None]
  - HEPATITIS [None]
